FAERS Safety Report 5273857-2 (Version None)
Quarter: 2007Q1

REPORT INFORMATION
  Report Type: 
  Country: None (occurrence: None)
  Receive Date: 20070323
  Receipt Date: 20070315
  Transmission Date: 20070707
  Serious: Yes (Hospitalization)
  Sender: FDA-Public Use
  Company Number: JP-ROCHE-482677

PATIENT
  Age: 16 Year
  Sex: Male
  Weight: 65 kg

DRUGS (1)
  1. TAMIFLU [Suspect]
     Dosage: DRUG NAME: TAMIFLU CAPSULE
     Route: 048
     Dates: start: 20070202, end: 20070206

REACTIONS (3)
  - ABNORMAL BEHAVIOUR [None]
  - DISORIENTATION [None]
  - SOMNOLENCE [None]
